FAERS Safety Report 25970744 (Version 1)
Quarter: 2025Q4

REPORT INFORMATION
  Report Type: Spontaneous
  Country: US (occurrence: US)
  Receive Date: 20251028
  Receipt Date: 20251028
  Transmission Date: 20260118
  Serious: Yes (Hospitalization, Other)
  Sender: NOVO NORDISK
  Company Number: US-NOVOPROD-1545951

PATIENT
  Age: 69 Year
  Sex: Male

DRUGS (1)
  1. FIASP [Suspect]
     Active Substance: INSULIN ASPART
     Indication: Type 2 diabetes mellitus
     Dosage: UNK, SLIDING SCALE BASED ON BLOOD SUGAR
     Route: 058
     Dates: start: 2018

REACTIONS (11)
  - Cellulitis [Unknown]
  - Vascular stent insertion [Unknown]
  - Pulmonary embolism [Recovered/Resolved]
  - Pneumonia [Recovered/Resolved]
  - Thrombosis [Unknown]
  - Internal haemorrhage [Recovered/Resolved]
  - Influenza [Recovered/Resolved]
  - Suspected COVID-19 [Unknown]
  - Localised infection [Unknown]
  - Hypoglycaemia [Unknown]
  - Insomnia [Unknown]

NARRATIVE: CASE EVENT DATE: 20200101
